FAERS Safety Report 23641868 (Version 1)
Quarter: 2024Q1

REPORT INFORMATION
  Report Type: Spontaneous
  Country: FR (occurrence: FR)
  Receive Date: 20240318
  Receipt Date: 20240318
  Transmission Date: 20240409
  Serious: Yes (Other)
  Sender: FDA-Public Use
  Company Number: FR-AFSSAPS-BX2024000443

PATIENT
  Age: 2 Year
  Sex: Female
  Weight: 11 kg

DRUGS (8)
  1. HYDROXYZINE [Suspect]
     Active Substance: HYDROXYZINE HYDROCHLORIDE
     Indication: Sedation
     Dosage: 10 MILLIGRAM, FOUR TIMES/DAY
     Route: 042
     Dates: start: 20240222, end: 20240226
  2. DEXMEDETOMIDINE HYDROCHLORIDE [Suspect]
     Active Substance: DEXMEDETOMIDINE HYDROCHLORIDE
     Indication: Sedation
     Dosage: 1.33 MICROGRAM/KILOGRAM, EVERY HOUR
     Route: 042
     Dates: start: 20240213, end: 20240226
  3. MIDAZOLAM [Suspect]
     Active Substance: MIDAZOLAM
     Indication: Sedation
     Dosage: 113 MICROGRAM/KILOGRAM, EVERY HOUR
     Route: 042
     Dates: start: 20240213, end: 20240226
  4. MORPHINE [Suspect]
     Active Substance: MORPHINE
     Indication: Sedation
     Dosage: 32.7 MICROGRAM/KILOGRAM, EVERY HOUR
     Route: 042
     Dates: start: 20240222, end: 20240226
  5. CYAMEMAZINE [Suspect]
     Active Substance: CYAMEMAZINE
     Indication: Agitation
     Dosage: 12 MILLIGRAM, 3 TIMES A DAY
     Route: 042
     Dates: start: 20240222, end: 20240226
  6. PANTOPRAZOLE [Concomitant]
     Active Substance: PANTOPRAZOLE
     Indication: Product used for unknown indication
     Dosage: UNK
     Route: 065
  7. ENOXAPARIN SODIUM [Concomitant]
     Active Substance: ENOXAPARIN SODIUM
     Indication: Product used for unknown indication
     Dosage: UNK
     Route: 065
  8. PIPERACILLIN SODIUM\TAZOBACTAM SODIUM [Concomitant]
     Active Substance: PIPERACILLIN SODIUM\TAZOBACTAM SODIUM
     Indication: Product used for unknown indication
     Dosage: UNK
     Route: 065

REACTIONS (2)
  - Extrapyramidal disorder [Recovering/Resolving]
  - Somnolence [Recovered/Resolved]

NARRATIVE: CASE EVENT DATE: 20240226
